FAERS Safety Report 7065101-0 (Version None)
Quarter: 2010Q4

REPORT INFORMATION
  Report Type: 
  Country: None (occurrence: None)
  Receive Date: 20101019
  Receipt Date: 20101007
  Transmission Date: 20110411
  Serious: Yes (Hospitalization)
  Sender: FDA-Public Use
  Company Number: 1000016787

PATIENT
  Age: 90 Year
  Sex: Female

DRUGS (11)
  1. ESCITALOPRAM [Suspect]
     Indication: DEPRESSION
     Dosage: 5 MG (5 MG, 1 IN 1 D), ORAL
     Route: 048
     Dates: end: 20100813
  2. VOLTARENE (DICLOFENAC SODIUM) (DICLOFENAC SODIUM) [Concomitant]
  3. OMEPRAZOLE [Concomitant]
  4. FORLAX (MACROGOL) (MACROGOL) [Concomitant]
  5. ACTISKENAN (MORPHINE SULFATE) (MORPHINE SULFATE) [Concomitant]
  6. TAREG (VALSARTAN) (VALSARTAN) [Concomitant]
  7. VASTAREL (TRIMETAZIDINE HYDROCHLORIDE) (TRIMETAZIDINE HYDROCHLORIDE) [Concomitant]
  8. KARDEGIC (ACETYLSALICYLATE LYSINE) (ACETYLSALICYLATE LYSINE) [Concomitant]
  9. CALCIPARENE (HEPARIN CALCIUM) (HEPARIN CALCIUM) [Concomitant]
  10. SOLUMEDROL (METHYLPREDNISOLONE SODIUM SUCCINATE) (METHYLPREDNISOLONE S [Concomitant]
  11. OFLOXACIN [Concomitant]

REACTIONS (6)
  - CONFUSIONAL STATE [None]
  - FALL [None]
  - HYPONATRAEMIA [None]
  - LOSS OF CONSCIOUSNESS [None]
  - QUADRIPLEGIA [None]
  - SOMNOLENCE [None]
